FAERS Safety Report 10391906 (Version 3)
Quarter: 2014Q3

REPORT INFORMATION
  Report Type: Spontaneous
  Country: JP (occurrence: JP)
  Receive Date: 20140819
  Receipt Date: 20140922
  Transmission Date: 20150326
  Serious: Yes (Other)
  Sender: FDA-Public Use
  Company Number: PHHY2014JP101442

PATIENT
  Age: 61 Year
  Sex: Female

DRUGS (5)
  1. ZOMETA [Suspect]
     Active Substance: ZOLEDRONIC ACID
     Indication: BONE LESION
  2. ZOMETA [Suspect]
     Active Substance: ZOLEDRONIC ACID
     Indication: BONE CANCER METASTATIC
     Dosage: 4 MG, QW4
     Dates: start: 20101027, end: 20120418
  3. EXEMESTANE. [Concomitant]
     Active Substance: EXEMESTANE
     Indication: INVASIVE DUCTAL BREAST CARCINOMA
     Route: 048
  4. RANMARK [Suspect]
     Active Substance: DENOSUMAB
     Indication: BONE CANCER METASTATIC
     Dosage: 120 MG, DAILY
     Route: 058
     Dates: start: 201205, end: 201308
  5. RANMARK [Suspect]
     Active Substance: DENOSUMAB
     Indication: BONE LESION

REACTIONS (8)
  - Bone disorder [Unknown]
  - Erythema [Unknown]
  - Swelling [Unknown]
  - Pain in jaw [Unknown]
  - Gingivitis [Unknown]
  - Tenderness [Unknown]
  - Bone fistula [Unknown]
  - Osteonecrosis of jaw [Not Recovered/Not Resolved]

NARRATIVE: CASE EVENT DATE: 201305
